FAERS Safety Report 9508699 (Version 2)
Quarter: 2013Q4

REPORT INFORMATION
  Report Type: Spontaneous
  Country: US (occurrence: US)
  Receive Date: 20130909
  Receipt Date: 20131119
  Transmission Date: 20140711
  Serious: Yes (Hospitalization)
  Sender: FDA-Public Use
  Company Number: US-GLAXOSMITHKLINE-A1040685A

PATIENT
  Age: 50 Year
  Sex: Male

DRUGS (2)
  1. LAMICTAL [Suspect]
     Indication: BIPOLAR DISORDER
     Dosage: 200MG UNKNOWN
     Route: 065
     Dates: start: 20090223
  2. PAXIL CR [Suspect]
     Indication: PRODUCT USED FOR UNKNOWN INDICATION
     Dosage: 37.5MG UNKNOWN
     Route: 065

REACTIONS (2)
  - Pneumonia [Unknown]
  - Thrombosis [Unknown]
